FAERS Safety Report 8837472 (Version 1)
Quarter: 2012Q4

REPORT INFORMATION
  Report Type: 
  Country: US (occurrence: US)
  Receive Date: 20121012
  Receipt Date: 20121012
  Transmission Date: 20130627
  Serious: No
  Sender: FDA-Public Use
  Company Number: US-B.I. PHARMACEUTICALS,INC./RIDGEFIELD-2012-BP-23822BP

PATIENT
  Sex: Female
  Weight: 70 kg

DRUGS (2)
  1. MICARDIS [Suspect]
     Indication: HYPERTENSION
     Route: 048
     Dates: start: 201009, end: 201009
  2. MECLIZINE [Concomitant]
     Indication: DIZZINESS
     Route: 048

REACTIONS (5)
  - Cough [Not Recovered/Not Resolved]
  - Asthenia [Not Recovered/Not Resolved]
  - Fall [Recovered/Resolved]
  - Throat tightness [Not Recovered/Not Resolved]
  - Muscle spasms [Not Recovered/Not Resolved]
